FAERS Safety Report 6692066-3 (Version None)
Quarter: 2010Q2

REPORT INFORMATION
  Report Type: 
  Country: None (occurrence: None)
  Receive Date: 20100415
  Receipt Date: 20090701
  Transmission Date: 20101027
  Serious: No
  Sender: FDA-Public Use
  Company Number: 2009-00402

PATIENT
  Age: 82 Year
  Sex: Female
  Weight: 65.7716 kg

DRUGS (6)
  1. ZICAM COLD REMEDY GEL SWABS [Suspect]
     Dosage: 2 YEARS AGO - FEW MONTHS AGO
  2. PREMADOL [Concomitant]
  3. ATENOLOL [Concomitant]
  4. ACTOS [Concomitant]
  5. CRENON EC [Concomitant]
  6. OMEPRAZOLE [Concomitant]

REACTIONS (1)
  - ANOSMIA [None]
